FAERS Safety Report 9613307 (Version 1)
Quarter: 2013Q4

REPORT INFORMATION
  Report Type: Spontaneous
  Country: US (occurrence: US)
  Receive Date: 20131010
  Receipt Date: 20131010
  Transmission Date: 20140711
  Serious: Yes (Hospitalization)
  Sender: FDA-Public Use
  Company Number: US-BAYER-2013-122140

PATIENT
  Age: 48 Year
  Sex: Female

DRUGS (11)
  1. OCELLA [Suspect]
  2. PANTOPRAZOLE [Concomitant]
     Dosage: 40 MG, UNK
  3. SERTRALINE [Concomitant]
     Dosage: 100 MG, UNK
  4. SINGULAIR [Concomitant]
     Dosage: 10 MG, UNK
  5. FUROSEMIDE [Concomitant]
     Dosage: 20 MG, UNK
  6. METOPROLOL TARTRATE [Concomitant]
     Dosage: 50 MG, UNK
  7. ATRIPLA [Concomitant]
  8. LIPITOR [Concomitant]
     Dosage: 80 MG, UNK
  9. AZITHROMYCIN [Concomitant]
     Dosage: 250 MG, UNK
  10. PREDNISONE [Concomitant]
     Dosage: 5 MG, UNK
  11. ADVAIR DISKUS [Concomitant]

REACTIONS (2)
  - Deep vein thrombosis [None]
  - Pulmonary embolism [None]
